FAERS Safety Report 7897107-3 (Version None)
Quarter: 2011Q4

REPORT INFORMATION
  Report Type: 
  Country: None (occurrence: None)
  Receive Date: 20111104
  Receipt Date: 20111104
  Transmission Date: 20120403
  Serious: Yes (Other)
  Sender: FDA-Public Use
  Company Number: None

PATIENT
  Age: 50 Year
  Sex: Male
  Weight: 86.4 kg

DRUGS (1)
  1. TOPROL-XL [Suspect]
     Indication: ATRIAL FIBRILLATION
     Dosage: 50MG TOPROL-XL 2 TIMES DAILEY
     Dates: start: 20101228, end: 20111001

REACTIONS (5)
  - FLATULENCE [None]
  - DIARRHOEA [None]
  - ABDOMINAL DISTENSION [None]
  - HAEMATOCHEZIA [None]
  - MUCOUS STOOLS [None]
